FAERS Safety Report 5210364-7 (Version None)
Quarter: 2007Q1

REPORT INFORMATION
  Report Type: 
  Country: None (occurrence: None)
  Receive Date: 20070117
  Receipt Date: 20070102
  Transmission Date: 20070707
  Serious: Yes (Hospitalization, Other)
  Sender: FDA-Public Use
  Company Number: US-BRISTOL-MYERS SQUIBB COMPANY-13605332

PATIENT
  Age: 79 Year
  Sex: Female
  Weight: 54 kg

DRUGS (16)
  1. CETUXIMAB [Suspect]
     Indication: CERVIX CARCINOMA
     Route: 042
     Dates: start: 20061026, end: 20061026
  2. CISPLATIN [Suspect]
     Indication: CERVIX CARCINOMA
     Dates: start: 20061019, end: 20061026
  3. RADIATION THERAPY [Suspect]
     Indication: CERVIX CARCINOMA
     Dates: start: 20061003, end: 20061003
  4. LISINOPRIL AND HYDROCHLOROTHIAZIDE [Concomitant]
     Route: 048
  5. OXYCODONE HCL + ACETAMINOPHEN [Concomitant]
     Indication: PAIN
  6. FAMOTIDINE [Concomitant]
     Route: 048
  7. POTASSIUM CHLORIDE [Concomitant]
     Route: 048
  8. APREPITANT [Concomitant]
     Route: 048
     Dates: start: 20061026
  9. DEXAMETHASONE [Concomitant]
     Route: 048
     Dates: start: 20061026, end: 20061028
  10. CIPROFLOXACIN [Concomitant]
     Route: 048
     Dates: start: 20061020, end: 20061020
  11. PROCHLORPERAZINE [Concomitant]
     Indication: NAUSEA
     Route: 048
  12. LOPERAMIDE HCL [Concomitant]
  13. MICONAZOLE [Concomitant]
     Indication: PROPHYLAXIS
     Route: 061
  14. BALSAM PERUE [Concomitant]
     Indication: PROPHYLAXIS
     Route: 061
  15. CASTOR OIL [Concomitant]
     Indication: PROPHYLAXIS
     Route: 061
  16. TRYPSIN [Concomitant]
     Indication: PROPHYLAXIS
     Route: 061

REACTIONS (14)
  - ABDOMINAL PAIN UPPER [None]
  - ANAEMIA [None]
  - ASTHENIA [None]
  - ATRIAL FIBRILLATION [None]
  - CARDIAC FAILURE CONGESTIVE [None]
  - DEHYDRATION [None]
  - DIARRHOEA [None]
  - GASTROINTESTINAL HAEMORRHAGE [None]
  - HOSPITALISATION [None]
  - HYDRONEPHROSIS [None]
  - HYDROURETER [None]
  - MENTAL STATUS CHANGES [None]
  - NAUSEA [None]
  - NEUTROPENIA [None]
